FAERS Safety Report 5944316-6 (Version None)
Quarter: 2008Q4

REPORT INFORMATION
  Report Type: 
  Country: None (occurrence: None)
  Receive Date: 20081105
  Receipt Date: 20081022
  Transmission Date: 20090506
  Serious: Yes (Hospitalization, Other)
  Sender: FDA-Public Use
  Company Number: 230954K08USA

PATIENT
  Age: 32 Year
  Sex: Female

DRUGS (6)
  1. REBIF [Suspect]
     Indication: MULTIPLE SCLEROSIS
     Dates: start: 20070618, end: 20071101
  2. REBIF [Suspect]
     Indication: MULTIPLE SCLEROSIS
     Dates: start: 20080101, end: 20080301
  3. REBIF [Suspect]
     Indication: MULTIPLE SCLEROSIS
     Dates: start: 20080101, end: 20080601
  4. LYRICA [Concomitant]
  5. PROVIGIL [Concomitant]
  6. AMANTADINE HCL [Concomitant]

REACTIONS (3)
  - CONVULSION [None]
  - GASTROINTESTINAL DISORDER [None]
  - IMPAIRED GASTRIC EMPTYING [None]
